FAERS Safety Report 12380231 (Version 1)
Quarter: 2016Q2

REPORT INFORMATION
  Report Type: Report from Study
  Country: US (occurrence: US)
  Receive Date: 20160518
  Receipt Date: 20160518
  Transmission Date: 20160815
  Serious: Yes (Other)
  Sender: FDA-Public Use
  Company Number: US-PFIZER INC-2016248174

PATIENT
  Age: 65 Year
  Sex: Female
  Weight: 94.3 kg

DRUGS (2)
  1. SILDENAFIL CITRATE. [Suspect]
     Active Substance: SILDENAFIL CITRATE
     Dosage: 2 DF, 3X/DAY
  2. TYVASO [Suspect]
     Active Substance: TREPROSTINIL
     Indication: PULMONARY HYPERTENSION
     Dosage: UNK (18-54 ?G), 4X/DAY (0.6MG/ML)
     Route: 055
     Dates: start: 20160325

REACTIONS (9)
  - Cough [Unknown]
  - Dental caries [Unknown]
  - Dyspnoea exertional [Unknown]
  - Palpitations [Unknown]
  - Deafness unilateral [Unknown]
  - Dizziness [Unknown]
  - Throat irritation [Unknown]
  - Vertigo [Unknown]
  - Headache [Unknown]

NARRATIVE: CASE EVENT DATE: 201603
